FAERS Safety Report 20296495 (Version 1)
Quarter: 2022Q1

REPORT INFORMATION
  Report Type: Spontaneous
  Country: GB (occurrence: GB)
  Receive Date: 20220105
  Receipt Date: 20220105
  Transmission Date: 20220423
  Serious: Yes (Life-Threatening, Other)
  Sender: FDA-Public Use
  Company Number: GB-MHRA-TPP13877861C7952511YC1640260834497

PATIENT
  Age: 65 Year
  Sex: Female
  Weight: 70 kg

DRUGS (8)
  1. BISOPROLOL [Suspect]
     Active Substance: BISOPROLOL
     Indication: Ill-defined disorder
     Dosage: UNK
     Route: 065
     Dates: start: 20211221
  2. AMLODIPINE [Concomitant]
     Active Substance: AMLODIPINE BESYLATE
     Indication: Ill-defined disorder
     Dosage: UNK (TAKE ONE TABLET DAILY FOR BLOOD PRESSURE)
     Route: 065
     Dates: start: 20140310
  3. ATENOLOL [Concomitant]
     Active Substance: ATENOLOL
     Indication: Ill-defined disorder
     Dosage: UNK (ONE TO BE TAKEN EACH MORNING)
     Route: 065
     Dates: start: 20211221
  4. BISOPROLOL [Concomitant]
     Active Substance: BISOPROLOL
     Indication: Ill-defined disorder
     Dosage: UNK (TAKE ONE TABLET IN THE EVENING TO HELP CONTROL ...)
     Route: 065
     Dates: start: 20210804, end: 20211223
  5. CITALOPRAM [Concomitant]
     Active Substance: CITALOPRAM HYDROBROMIDE
     Indication: Ill-defined disorder
     Dosage: UNK (TAKE ONE TABLET DAILY TO HELP WITH THE SYMPTOMS...)
     Route: 065
     Dates: start: 20100906
  6. COCODAMOL [Concomitant]
     Active Substance: ACETAMINOPHEN\CODEINE PHOSPHATE
     Indication: Ill-defined disorder
     Dosage: UNK (TAKE ONE OR TWO TABLETS UP TO 4 TIMES/DAY, FOR ...)
     Route: 065
     Dates: start: 20190125
  7. EDOXABAN [Concomitant]
     Active Substance: EDOXABAN
     Indication: Ill-defined disorder
     Dosage: UNK (TAKE ONE TABLET ONCE A DAY TO HELP THIN THE BLO...)
     Route: 065
     Dates: start: 20210813
  8. FAMOTIDINE [Concomitant]
     Active Substance: FAMOTIDINE
     Indication: Ill-defined disorder
     Dosage: UNK (TAKE ONE TABLET DAILY)
     Route: 065
     Dates: start: 20210318

REACTIONS (1)
  - Anaphylactic reaction [Recovered/Resolved]

NARRATIVE: CASE EVENT DATE: 20211221
